FAERS Safety Report 17514680 (Version 1)
Quarter: 2020Q1

REPORT INFORMATION
  Report Type: Report from Study
  Country: None (occurrence: AR)
  Receive Date: 20200309
  Receipt Date: 20200309
  Transmission Date: 20200409
  Serious: Yes (Other)
  Sender: FDA-Public Use
  Company Number: AR-ABBVIE-20K-007-3299111-00

PATIENT
  Age: 25 Year
  Sex: Female

DRUGS (1)
  1. HUMIRA [Suspect]
     Active Substance: ADALIMUMAB
     Indication: UVEITIS
     Route: 058
     Dates: start: 20190806

REACTIONS (8)
  - Blindness [Not Recovered/Not Resolved]
  - Eye inflammation [Recovering/Resolving]
  - Eye pain [Unknown]
  - Oropharyngeal pain [Not Recovered/Not Resolved]
  - Cataract [Unknown]
  - Glossitis [Not Recovered/Not Resolved]
  - Headache [Unknown]
  - Pharyngeal inflammation [Not Recovered/Not Resolved]

NARRATIVE: CASE EVENT DATE: 202002
